FAERS Safety Report 6643653-X (Version None)
Quarter: 2010Q1

REPORT INFORMATION
  Report Type: 
  Country: None (occurrence: None)
  Receive Date: 20100321
  Receipt Date: 20100308
  Transmission Date: 20100710
  Serious: Yes (Hospitalization)
  Sender: FDA-Public Use
  Company Number: US-ELI_LILLY_AND_COMPANY-US201003002133

PATIENT
  Sex: Female
  Weight: 129 kg

DRUGS (8)
  1. BYETTA [Suspect]
     Indication: TYPE 2 DIABETES MELLITUS
     Dosage: 5 UG, 2/D
     Dates: start: 20100218, end: 20100306
  2. BYETTA [Suspect]
     Dosage: 10 UG, 2/D
     Dates: start: 20100306
  3. GLIPIZIDE [Concomitant]
     Indication: TYPE 2 DIABETES MELLITUS
     Dosage: UNK, 2/D
  4. DARVOCET [Concomitant]
     Indication: SPINAL DISORDER
     Dosage: 650 MG, AS NEEDED
  5. XANAX [Concomitant]
     Indication: ANXIETY
     Dosage: 0.5 MG, UNK
  6. ADVAIR DISKUS 100/50 [Concomitant]
     Dosage: 2 D/F, 2/D
  7. PROAIR HFA [Concomitant]
     Dosage: UNK, AS NEEDED
  8. CORTICOSTEROID NOS [Concomitant]
     Indication: DYSPNOEA
     Dosage: UNK, AS NEEDED

REACTIONS (6)
  - BLOOD GLUCOSE INCREASED [None]
  - BRONCHITIS [None]
  - COUGH [None]
  - DYSPNOEA [None]
  - OFF LABEL USE [None]
  - PULMONARY CONGESTION [None]
